FAERS Safety Report 8470199-9 (Version None)
Quarter: 2012Q2

REPORT INFORMATION
  Report Type: 
  Country: None (occurrence: None)
  Receive Date: 20120621
  Receipt Date: 20120621
  Transmission Date: 20120825
  Serious: Yes (Other)
  Sender: FDA-Public Use
  Company Number: None

PATIENT
  Age: 68 Year
  Sex: Female

DRUGS (1)
  1. AMIODARONE HYDROCHLORIDE [Suspect]
     Indication: CARDIAC DISORDER
     Dates: start: 20110313, end: 20120213

REACTIONS (21)
  - MYALGIA [None]
  - BALANCE DISORDER [None]
  - DYSPHONIA [None]
  - PAIN [None]
  - CHEST PAIN [None]
  - HEADACHE [None]
  - ARTHRALGIA [None]
  - NECK PAIN [None]
  - MUSCULOSKELETAL PAIN [None]
  - INFLAMMATION [None]
  - NASOPHARYNGITIS [None]
  - TREMOR [None]
  - PAIN IN EXTREMITY [None]
  - PRURITUS [None]
  - ABASIA [None]
  - SCAR [None]
  - RASH GENERALISED [None]
  - DRY THROAT [None]
  - SNEEZING [None]
  - HYPOAESTHESIA [None]
  - SKIN IRRITATION [None]
